FAERS Safety Report 16124866 (Version 1)
Quarter: 2019Q1

REPORT INFORMATION
  Report Type: Spontaneous
  Country: CH (occurrence: CH)
  Receive Date: 20190327
  Receipt Date: 20190327
  Transmission Date: 20190418
  Serious: Yes (Other)
  Sender: FDA-Public Use
  Company Number: CH-ASTRAZENECA-2018SF30437

PATIENT
  Age: 646 Month
  Sex: Female

DRUGS (22)
  1. LYNPARZA [Suspect]
     Active Substance: OLAPARIB
     Indication: GALLBLADDER CANCER
     Dosage: 3X3
     Route: 048
     Dates: start: 201809
  2. LYNPARZA [Suspect]
     Active Substance: OLAPARIB
     Indication: GALLBLADDER CANCER
     Dosage: 4 CAPSULES PER DAY
     Route: 048
  3. MAGNESIUM [Concomitant]
     Active Substance: MAGNESIUM
     Dosage: DAILY 10.00
  4. VITAMINS NOS [Concomitant]
     Active Substance: VITAMINS
     Dosage: DAILY 10.00
  5. DAFALGAN [Concomitant]
     Active Substance: ACETAMINOPHEN
     Dosage: 1-2 X PER YEAR
  6. TARGIN [Concomitant]
     Active Substance: NALOXONE HYDROCHLORIDE\OXYCODONE HYDROCHLORIDE
     Dosage: 1-2 X PER YEAR
  7. OXYNORM [Concomitant]
     Active Substance: OXYCODONE HYDROCHLORIDE
     Dosage: 1-2 X PER YEAR
  8. LYNPARZA [Suspect]
     Active Substance: OLAPARIB
     Indication: GALLBLADDER CANCER
     Dosage: 6 CAPSULES
     Route: 048
  9. BUSCOPAN [Concomitant]
     Active Substance: BUTYLSCOPOLAMINE BROMIDE
     Dosage: 1-2 X PER YEAR
  10. XARELTO [Concomitant]
     Active Substance: RIVAROXABAN
     Dosage: 20 DAILY 08.00
  11. PANTOPRAZOLE [Concomitant]
     Active Substance: PANTOPRAZOLE
     Dosage: 40 2 X DAILY 08.00 AND 18.00
  12. FLATULEX [Concomitant]
     Active Substance: ACTIVATED CHARCOAL\DIMETHICONE
     Dosage: 3 X DAILY 2 09.30, 14.00 AND 18.45
  13. TRITTICO [Concomitant]
     Active Substance: TRAZODONE HYDROCHLORIDE
     Dosage: 150 DAILY AT 10.30PM
  14. NOVALGIN [Concomitant]
     Dosage: 2-3X PER WEEK
  15. LYNPARZA [Suspect]
     Active Substance: OLAPARIB
     Indication: GALLBLADDER CANCER
     Dosage: TWICE A DAY
     Route: 048
     Dates: start: 20180922
  16. LYNPARZA [Suspect]
     Active Substance: OLAPARIB
     Indication: GALLBLADDER CANCER
     Dosage: 4X4
     Route: 048
     Dates: start: 201809
  17. ELTROXIN [Concomitant]
     Active Substance: LEVOTHYROXINE
     Dosage: 0.1 EVERY OTHER DAY 6:00
  18. CANNABIS OIL [Concomitant]
     Active Substance: CANNABIS SATIVA SEED OIL
     Dosage: 3 X DAILY 15, 15 AND 20, AT 10.00, 15.00 AND 22.00
  19. VITAMIN C [Concomitant]
     Active Substance: ASCORBIC ACID
     Dosage: DAILY 10.00
  20. TEMESTA [Concomitant]
     Dosage: 1-2 X PER YEAR
  21. ELTROXIN [Concomitant]
     Active Substance: LEVOTHYROXINE
     Dosage: 0.05 MG DAILY 6:00
  22. MOTILIUM [Concomitant]
     Active Substance: DOMPERIDONE
     Dosage: 3 TIMES A DAY AT 09.00, 13.30 AND 18.15

REACTIONS (22)
  - Gastric neoplasm [Not Recovered/Not Resolved]
  - Haemangioma of liver [Unknown]
  - Periarthritis [Unknown]
  - Abdominal pain upper [Unknown]
  - Off label use [Unknown]
  - Pancreatic neoplasm [Not Recovered/Not Resolved]
  - Pain [Unknown]
  - Dyspepsia [Unknown]
  - Depression [Unknown]
  - Headache [Unknown]
  - Fatigue [Unknown]
  - Decreased appetite [Unknown]
  - Parosmia [Unknown]
  - Malaise [Unknown]
  - Nausea [Unknown]
  - Pyrexia [Unknown]
  - Muscle spasms [Unknown]
  - Product use in unapproved indication [Unknown]
  - Metastases to peritoneum [Unknown]
  - Pain in extremity [Unknown]
  - Breast pain [Unknown]
  - Vomiting [Unknown]

NARRATIVE: CASE EVENT DATE: 201809
